FAERS Safety Report 10074914 (Version 1)
Quarter: 2014Q2

REPORT INFORMATION
  Report Type: Spontaneous
  Country: US (occurrence: US)
  Receive Date: 20140414
  Receipt Date: 20140414
  Transmission Date: 20141212
  Serious: No
  Sender: FDA-Public Use
  Company Number: US-BIOGENIDEC-2013BI081023

PATIENT
  Sex: Female

DRUGS (19)
  1. TECFIDERA [Suspect]
     Indication: MULTIPLE SCLEROSIS
     Route: 048
     Dates: start: 201307
  2. TECFIDERA [Suspect]
     Indication: MULTIPLE SCLEROSIS
     Route: 048
     Dates: start: 201307
  3. AMPYRA [Concomitant]
  4. ACCOLATE [Concomitant]
  5. ASPIRIN LOW-STRENGTH [Concomitant]
  6. BC HEADACHE POWDER [Concomitant]
  7. PERCOCET [Concomitant]
  8. LASIX [Concomitant]
  9. PROVIGIL [Concomitant]
  10. ZOMIG [Concomitant]
  11. MAXALT [Concomitant]
  12. POTASSIUM [Concomitant]
  13. SIMVASTATIN [Concomitant]
  14. SYNTHROID [Concomitant]
  15. NEXIUM [Concomitant]
  16. ESTRADIOL [Concomitant]
  17. DILANTIN [Concomitant]
  18. NEURONTIN [Concomitant]
  19. IMITREX [Concomitant]

REACTIONS (1)
  - Constipation [Unknown]
